FAERS Safety Report 7537489-5 (Version None)
Quarter: 2011Q2

REPORT INFORMATION
  Report Type: 
  Country: None (occurrence: None)
  Receive Date: 20110609
  Receipt Date: 20080724
  Transmission Date: 20111010
  Serious: Yes (Death, Disabling)
  Sender: FDA-Public Use
  Company Number: US-BAYER-US-2007-039401

PATIENT
  Sex: Male
  Weight: 84 kg

DRUGS (21)
  1. MAGNEVIST [Suspect]
     Indication: NUCLEAR MAGNETIC RESONANCE IMAGING ABDOMINAL
     Dosage: 20 ML, 1 DOSE
     Dates: start: 20050909, end: 20050909
  2. DARVOCET [Concomitant]
  3. ACCOLATE [Concomitant]
  4. LIPITOR [Concomitant]
  5. ZAROXOLYN [Concomitant]
  6. COMBIVENT [Concomitant]
  7. DIOVAN [Concomitant]
  8. GADOLINIUM IN UNSPECIFIED DRUG [Suspect]
     Dosage: UNK UNK, ONCE
     Dates: start: 20030411, end: 20030411
  9. OMNISCAN [Suspect]
     Indication: NUCLEAR MAGNETIC RESONANCE IMAGING ABDOMINAL
     Dosage: UNK, UNK
     Dates: start: 20050824, end: 20050824
  10. EPOGEN [Concomitant]
  11. VENOFER [Concomitant]
  12. AMLODIPINE [Concomitant]
  13. COUMADIN [Concomitant]
  14. LASIX [Concomitant]
  15. CARDURA [Concomitant]
  16. PLAVIX [Concomitant]
  17. PHOSLO [Concomitant]
  18. TUMS [CALCIUM CARBONATE] [Concomitant]
  19. HUMALOG [Concomitant]
  20. ASPIRIN [Concomitant]
  21. ADVAIR DISKUS 100/50 [Concomitant]

REACTIONS (12)
  - MUSCULOSKELETAL STIFFNESS [None]
  - SKIN INDURATION [None]
  - OEDEMA PERIPHERAL [None]
  - ABASIA [None]
  - MUSCULAR WEAKNESS [None]
  - PAIN [None]
  - SKIN HYPERPIGMENTATION [None]
  - SKIN PLAQUE [None]
  - NEPHROGENIC SYSTEMIC FIBROSIS [None]
  - JOINT RANGE OF MOTION DECREASED [None]
  - SKIN HYPERTROPHY [None]
  - DRY SKIN [None]
